FAERS Safety Report 6846666-8 (Version None)
Quarter: 2010Q3

REPORT INFORMATION
  Report Type: 
  Country: None (occurrence: None)
  Receive Date: 20100713
  Receipt Date: 20100630
  Transmission Date: 20110219
  Serious: Yes (Death, Other)
  Sender: FDA-Public Use
  Company Number: MC201000208

PATIENT

DRUGS (5)
  1. ANGIOMAX, ANIGOX (BIVALIRUDIN) INJECTION [Suspect]
     Indication: PERCUTANEOUS CORONARY INTERVENTION
  2. CLOPIDOGREL [Concomitant]
  3. CLOPIDOGREL [Concomitant]
  4. CLOPIDOGREL [Concomitant]
  5. ASPIRIN [Concomitant]

REACTIONS (4)
  - CORONARY REVASCULARISATION [None]
  - DRUG RESISTANCE [None]
  - MYOCARDIAL INFARCTION [None]
  - THROMBOSIS IN DEVICE [None]
